FAERS Safety Report 7067414-5 (Version None)
Quarter: 2010Q4

REPORT INFORMATION
  Report Type: 
  Country: None (occurrence: None)
  Receive Date: 20101026
  Receipt Date: 20101026
  Transmission Date: 20110411
  Serious: Yes (Hospitalization, Disabling)
  Sender: FDA-Public Use
  Company Number: None

PATIENT
  Age: 24 Year
  Sex: Female
  Weight: 77.1115 kg

DRUGS (1)
  1. TETRACYCLINE HCL [Suspect]
     Indication: STAPHYLOCOCCAL INFECTION
     Dosage: 1 PILL 4/DAY PO
     Route: 048
     Dates: start: 20100207, end: 20100221

REACTIONS (3)
  - BENIGN INTRACRANIAL HYPERTENSION [None]
  - FATIGUE [None]
  - TINNITUS [None]
